FAERS Safety Report 8596451-4 (Version None)
Quarter: 2012Q3

REPORT INFORMATION
  Report Type: 
  Country: None (occurrence: None)
  Receive Date: 20120815
  Receipt Date: 20120809
  Transmission Date: 20120928
  Serious: Yes (Other)
  Sender: FDA-Public Use
  Company Number: TT-ABBOTT-12P-159-0967215-00

PATIENT
  Sex: Female
  Weight: 87.168 kg

DRUGS (4)
  1. HUMIRA [Suspect]
     Indication: CROHN'S DISEASE
     Route: 058
     Dates: start: 20111201, end: 20120601
  2. HUMIRA [Suspect]
     Route: 058
     Dates: start: 20120701
  3. IMURAN [Concomitant]
     Indication: CROHN'S DISEASE
     Dates: start: 20111201
  4. HUMIRA [Suspect]
     Route: 058
     Dates: start: 20120601, end: 20120701

REACTIONS (2)
  - PURPURA [None]
  - OFF LABEL USE [None]
